FAERS Safety Report 19646453 (Version 1)
Quarter: 2021Q3

REPORT INFORMATION
  Report Type: Spontaneous
  Country: US (occurrence: US)
  Receive Date: 20210802
  Receipt Date: 20210802
  Transmission Date: 20211014
  Serious: Yes (Hospitalization, Other)
  Sender: FDA-Public Use
  Company Number: US-APOTEX-2021AP023968

PATIENT
  Age: 81 Year
  Sex: Male

DRUGS (6)
  1. ASPIRIN [ACETYLSALICYLIC ACID] [Suspect]
     Active Substance: ASPIRIN
     Indication: CORONARY ARTERY DISEASE
  2. APIXABAN [Suspect]
     Active Substance: APIXABAN
     Indication: ATRIAL FIBRILLATION
     Dosage: UNK
     Route: 065
  3. CLOPIDOGREL [Suspect]
     Active Substance: CLOPIDOGREL BISULFATE
     Indication: CORONARY ARTERY DISEASE
  4. ASPIRIN [ACETYLSALICYLIC ACID] [Suspect]
     Active Substance: ASPIRIN
     Indication: ATRIAL FIBRILLATION
     Dosage: UNK
     Route: 065
  5. CLOPIDOGREL [Suspect]
     Active Substance: CLOPIDOGREL BISULFATE
     Indication: ATRIAL FIBRILLATION
     Dosage: UNK
     Route: 065
  6. APIXABAN [Suspect]
     Active Substance: APIXABAN
     Indication: CORONARY ARTERY DISEASE

REACTIONS (3)
  - Splenic haematoma [Recovering/Resolving]
  - Splenic rupture [Recovering/Resolving]
  - Haemoperitoneum [Recovering/Resolving]
